FAERS Safety Report 4618824-4 (Version None)
Quarter: 2005Q1

REPORT INFORMATION
  Report Type: 
  Country: None (occurrence: None)
  Receive Date: 20050323
  Receipt Date: 20050308
  Transmission Date: 20050727
  Serious: Yes (Hospitalization)
  Sender: FDA-Public Use
  Company Number: USA050392739

PATIENT
  Age: 79 Year
  Sex: Female
  Weight: 50 kg

DRUGS (3)
  1. HUMULIN 70/30 [Suspect]
     Dates: start: 20030101
  2. HUMULIN R [Suspect]
     Dates: start: 20050201
  3. REGLAN [Concomitant]

REACTIONS (8)
  - BLOOD GLUCOSE INCREASED [None]
  - BODY HEIGHT DECREASED [None]
  - DIFFICULTY IN WALKING [None]
  - DYSPNOEA [None]
  - FEELING ABNORMAL [None]
  - PAIN [None]
  - SPINAL DEFORMITY [None]
  - WEIGHT DECREASED [None]
